FAERS Safety Report 14664683 (Version 1)
Quarter: 2018Q1

REPORT INFORMATION
  Report Type: Spontaneous
  Country: US (occurrence: US)
  Receive Date: 20180321
  Receipt Date: 20180321
  Transmission Date: 20180509
  Serious: Yes (Hospitalization)
  Sender: FDA-Public Use
  Company Number: US-IMPAX LABORATORIES, INC-2018-IPXL-00575

PATIENT
  Age: 78 Year
  Sex: Female

DRUGS (1)
  1. ANAGRELIDE HYDROCHLORIDE. [Suspect]
     Active Substance: ANAGRELIDE HYDROCHLORIDE
     Indication: ESSENTIAL THROMBOCYTHAEMIA
     Dosage: UNK
     Route: 065

REACTIONS (10)
  - Skin haemorrhage [Unknown]
  - Haematoma [Unknown]
  - Fall [Unknown]
  - Syncope [Recovered/Resolved]
  - Electrocardiogram QT prolonged [Recovered/Resolved]
  - Sinus arrhythmia [Recovered/Resolved]
  - Contusion [Unknown]
  - Traumatic fracture [Unknown]
  - Eyelid injury [Unknown]
  - Ventricular tachyarrhythmia [Recovered/Resolved]
